FAERS Safety Report 4584225-0 (Version None)
Quarter: 2005Q1

REPORT INFORMATION
  Report Type: 
  Country: None (occurrence: None)
  Receive Date: 20050125
  Receipt Date: 20041102
  Transmission Date: 20050727
  Serious: No
  Sender: FDA-Public Use
  Company Number: USA041082531

PATIENT
  Age: 63 Year
  Sex: Male

DRUGS (5)
  1. FORTEO [Suspect]
     Indication: OSTEOPOROSIS
     Dosage: 20 UG DAY
     Dates: start: 20041016, end: 20041025
  2. PREDNISONE [Concomitant]
  3. LASIX [Concomitant]
  4. MORPHINE [Concomitant]
  5. LORTAB [Concomitant]

REACTIONS (8)
  - DYSPNOEA [None]
  - HEADACHE [None]
  - HYPERSOMNIA [None]
  - INJECTION SITE INDURATION [None]
  - INJECTION SITE SWELLING [None]
  - NAUSEA [None]
  - OEDEMA PERIPHERAL [None]
  - VOMITING [None]
